FAERS Safety Report 26020334 (Version 1)
Quarter: 2025Q4

REPORT INFORMATION
  Report Type: Spontaneous
  Country: EG (occurrence: EG)
  Receive Date: 20251110
  Receipt Date: 20251110
  Transmission Date: 20260118
  Serious: Yes (Death, Other)
  Sender: HIKMA
  Company Number: EG-HIKMA PHARMACEUTICALS USA INC.-EG-H14001-25-11833

PATIENT
  Age: 15 Year
  Sex: Female

DRUGS (2)
  1. MITOXANTRONE [Suspect]
     Active Substance: MITOXANTRONE HYDROCHLORIDE
     Indication: Acute myeloid leukaemia
     Dosage: 20 MILLIGRAM, FOR 3 DAYS EVERY CYCLE (20 MG WITH DOSE 15 MG IV INFUSION)
     Route: 042
     Dates: start: 20250806, end: 20250809
  2. CYTARABINE [Suspect]
     Active Substance: CYTARABINE
     Indication: Acute myeloid leukaemia
     Dosage: 1 GRAM, FOR 3 DAYS EVERY CYCLE (1 G WITH DOSE 1500 MG IV INFUSION)
     Route: 042
     Dates: start: 20250804, end: 20250807

REACTIONS (5)
  - Sepsis [Fatal]
  - Febrile neutropenia [Fatal]
  - Pancytopenia [Fatal]
  - Abdominal pain [Not Recovered/Not Resolved]
  - Diarrhoea [Not Recovered/Not Resolved]

NARRATIVE: CASE EVENT DATE: 20250816
